FAERS Safety Report 8590482-6 (Version None)
Quarter: 2012Q3

REPORT INFORMATION
  Report Type: 
  Country: None (occurrence: None)
  Receive Date: 20120813
  Receipt Date: 20120807
  Transmission Date: 20120928
  Serious: Yes (Other)
  Sender: FDA-Public Use
  Company Number: US-PFIZER INC-2012140485

PATIENT
  Age: 77 Year
  Sex: Female

DRUGS (10)
  1. SYNTHROID [Concomitant]
     Dosage: UNK
  2. DETROL [Concomitant]
     Dosage: UNK
  3. VYTORIN [Concomitant]
     Dosage: UNK
  4. RESTORIL [Concomitant]
     Dosage: UNK
  5. LYRICA [Suspect]
     Indication: BACK PAIN
     Dosage: 50 MG, 2X/DAY
     Route: 048
     Dates: end: 20120608
  6. VITAMIN D [Concomitant]
     Dosage: UNK
  7. VOLTAREN [Concomitant]
     Dosage: UNK
  8. LYRICA [Suspect]
     Indication: LUMBAR SPINAL STENOSIS
     Dosage: 50 MG, 1X/DAY
     Route: 048
     Dates: start: 20120501
  9. ESTRACE [Concomitant]
     Dosage: UNK
  10. CYMBALTA [Concomitant]
     Dosage: UNK

REACTIONS (8)
  - MYALGIA [None]
  - DIZZINESS [None]
  - GAIT DISTURBANCE [None]
  - DRY MOUTH [None]
  - PYREXIA [None]
  - PAIN [None]
  - MOVEMENT DISORDER [None]
  - NAUSEA [None]
